FAERS Safety Report 19984391 (Version 1)
Quarter: 2021Q4

REPORT INFORMATION
  Report Type: Spontaneous
  Country: FR (occurrence: FR)
  Receive Date: 20211021
  Receipt Date: 20211021
  Transmission Date: 20220303
  Serious: Yes (Hospitalization)
  Sender: FDA-Public Use
  Company Number: None

PATIENT
  Age: 22 Year
  Sex: Male

DRUGS (2)
  1. IBUPROFEN [Suspect]
     Active Substance: IBUPROFEN
     Indication: Arthralgia
     Dosage: 4 GRAM, TOTAL (PRISE :  10 CP DE 400 MG SOIT 4G EN 24H)
     Route: 048
     Dates: start: 20210626, end: 20210626
  2. DOLIPRANE [Suspect]
     Active Substance: ACETAMINOPHEN
     Indication: Arthralgia
     Dosage: 19 GRAM, TOTAL (25/06/2021 16 CP DE 1G 26/06/2021 3 CP DE 1G  SOIT 19G EN 24H)
     Route: 048
     Dates: start: 20210625, end: 20210626

REACTIONS (3)
  - Hyperlipasaemia [Not Recovered/Not Resolved]
  - Incorrect dosage administered [Recovered/Resolved]
  - Accidental overdose [Recovered/Resolved]

NARRATIVE: CASE EVENT DATE: 20210625
